FAERS Safety Report 6903062-2 (Version None)
Quarter: 2010Q3

REPORT INFORMATION
  Report Type: 
  Country: None (occurrence: None)
  Receive Date: 20100803
  Receipt Date: 20080612
  Transmission Date: 20110219
  Serious: No
  Sender: FDA-Public Use
  Company Number: US-PFIZER INC-2008043584

PATIENT
  Sex: Female
  Weight: 66.5 kg

DRUGS (7)
  1. LYRICA [Suspect]
     Indication: FIBROMYALGIA
     Route: 048
     Dates: start: 20080313, end: 20080413
  2. ATENOLOL [Concomitant]
  3. ZOLOFT [Concomitant]
  4. SOMA [Concomitant]
  5. ALPRAZOLAM [Concomitant]
  6. VICOPROFEN [Concomitant]
  7. MULTIPLE VITAMINS [Concomitant]

REACTIONS (1)
  - OEDEMA PERIPHERAL [None]
